FAERS Safety Report 5355612-8 (Version None)
Quarter: 2007Q2

REPORT INFORMATION
  Report Type: 
  Country: None (occurrence: None)
  Receive Date: 20070613
  Receipt Date: 20070613
  Transmission Date: 20071010
  Serious: Yes (Other)
  Sender: FDA-Public Use
  Company Number: B0451659A

PATIENT
  Age: 42 Year
  Sex: Female

DRUGS (16)
  1. SERETIDE [Suspect]
     Indication: ASTHMA
     Route: 055
     Dates: start: 19990101
  2. FLIXOTIDE [Suspect]
     Indication: ASTHMA
     Route: 055
     Dates: start: 19990101
  3. DIPROSTENE [Suspect]
     Route: 065
     Dates: start: 20020101
  4. CORTICOSTEROIDS [Suspect]
     Indication: ASTHMATIC CRISIS
     Route: 048
     Dates: start: 19980101
  5. CORTICOSTEROIDS [Suspect]
     Route: 042
     Dates: start: 19980101
  6. PULMICORT [Suspect]
     Indication: ASTHMA
  7. DHEA [Suspect]
     Indication: PREMATURE MENOPAUSE
  8. NASONEX [Suspect]
     Route: 045
  9. SOLU-MEDROL [Suspect]
     Indication: ASTHMATIC CRISIS
     Route: 042
     Dates: start: 19990201
  10. HYDROCORTISONE [Suspect]
  11. BECOTIDE [Suspect]
     Indication: ASTHMATIC CRISIS
  12. ALDACTONE [Concomitant]
     Dosage: 75MG PER DAY
     Route: 048
     Dates: start: 19940101
  13. INDAPAMIDE [Concomitant]
     Dosage: 10MG PER DAY
  14. LEVOTHYROXINE SODIUM [Concomitant]
  15. SEREVENT [Concomitant]
     Indication: ASTHMA
     Route: 050
     Dates: start: 19990101
  16. VENTOLIN [Concomitant]
     Indication: ASTHMATIC CRISIS

REACTIONS (15)
  - ARTHRALGIA [None]
  - ASTHMA [None]
  - CUSHING'S SYNDROME [None]
  - DYSPHONIA [None]
  - EYELID OEDEMA [None]
  - FLUID RETENTION [None]
  - GAIT DISTURBANCE [None]
  - GASTRIC BANDING [None]
  - HYPERCORTICOIDISM [None]
  - HYPOKALAEMIA [None]
  - LOCAL SWELLING [None]
  - SKIN IRRITATION [None]
  - SKIN STRIAE [None]
  - SWELLING FACE [None]
  - WEIGHT INCREASED [None]
